FAERS Safety Report 22519277 (Version 6)
Quarter: 2023Q4

REPORT INFORMATION
  Report Type: Spontaneous
  Country: JP (occurrence: JP)
  Receive Date: 20230605
  Receipt Date: 20231030
  Transmission Date: 20240110
  Serious: Yes (Other)
  Sender: FDA-Public Use
  Company Number: JP-GLAXOSMITHKLINE-JP2023JPN077804

PATIENT

DRUGS (11)
  1. DAPRODUSTAT [Suspect]
     Active Substance: DAPRODUSTAT
     Indication: Nephrogenic anaemia
     Dosage: 2 MG, 1D, AFTER BREAKFAST
     Dates: start: 20230428, end: 20230526
  2. EDOXABAN TOSYLATE [Concomitant]
     Active Substance: EDOXABAN TOSYLATE
     Dosage: 30 MG, 1D, AFTER BREAKFAST
     Dates: start: 20230203
  3. ROSUVASTATIN CALCIUM [Concomitant]
     Active Substance: ROSUVASTATIN CALCIUM
     Dosage: 20 MG, 1D, AFTER BREAKFAST
     Dates: start: 20230203
  4. EZETIMIBE TABLET [Concomitant]
     Dosage: 10 MG, 1D, AFTER BREAKFAST
     Dates: start: 20230203
  5. FEBUXOSTAT [Concomitant]
     Active Substance: FEBUXOSTAT
     Dosage: 10 MG, 1D, AFTER BREAKFAST
     Dates: start: 20230428
  6. ENTRESTO [Concomitant]
     Active Substance: SACUBITRIL\VALSARTAN
     Dosage: 200 MG, 1D, AFTER BREAKFAST
     Dates: start: 20230203
  7. VONOPRAZAN FUMARATE [Concomitant]
     Active Substance: VONOPRAZAN FUMARATE
     Dosage: 20 MG, 1D, AFTER BREAKFAST
     Dates: start: 20230203
  8. CALCIUM POLYSTYRENE SULFONATE [Concomitant]
     Active Substance: CALCIUM POLYSTYRENE SULFONATE
     Dosage: 1 DF, 1D, ORAL FLUID 20%, 1 PACK/DOSE, AFTER BREAKFAST
     Dates: start: 20230203
  9. AMLODIPINE BESYLATE [Concomitant]
     Active Substance: AMLODIPINE BESYLATE
     Dosage: 5 MG, BID, AFTER BREAKFAST AND DINNER
     Dates: start: 20230203
  10. CARVEDILOL [Concomitant]
     Active Substance: CARVEDILOL
     Dosage: 1.25 MG, BID, AFTER BREAKFAST AND DINNER
     Dates: start: 20230203
  11. LOXOPROFEN NA TAPE [Concomitant]
     Dosage: 1 DF, 1D, ONE PATCH PER DAY, 100 MG, TO THE LOWER BACK
     Dates: start: 20230203

REACTIONS (2)
  - Interstitial lung disease [Recovered/Resolved]
  - Organising pneumonia [Recovered/Resolved]

NARRATIVE: CASE EVENT DATE: 20230515
